FAERS Safety Report 6795322-3 (Version None)
Quarter: 2010Q2

REPORT INFORMATION
  Report Type: 
  Country: None (occurrence: None)
  Receive Date: 20100625
  Receipt Date: 20100622
  Transmission Date: 20101027
  Serious: Yes (Hospitalization, Other)
  Sender: FDA-Public Use
  Company Number: US-ELI_LILLY_AND_COMPANY-US200711000746

PATIENT
  Age: 20 Year
  Sex: Female
  Weight: 104.3 kg

DRUGS (4)
  1. PEMETREXED [Suspect]
     Indication: EWING'S SARCOMA
     Dosage: 1910 MG, D1 Q21D
     Route: 042
     Dates: start: 20071014, end: 20071015
  2. DEXAMETHASONE [Concomitant]
     Indication: SUPPLEMENTATION THERAPY
     Dosage: 0.1 MG/KG, OTHER
     Route: 048
     Dates: start: 20071013, end: 20071016
  3. VITAMIN B-12 [Concomitant]
     Indication: SUPPLEMENTATION THERAPY
     Dosage: 1 MG, OTHER
     Route: 030
     Dates: start: 20071014, end: 20071015
  4. MULTI-VITAMINS [Concomitant]
     Indication: SUPPLEMENTATION THERAPY
     Dates: start: 20071014

REACTIONS (3)
  - FLUSHING [None]
  - NEUTROPENIC INFECTION [None]
  - PNEUMONIA [None]
